FAERS Safety Report 6441517-8 (Version None)
Quarter: 2009Q4

REPORT INFORMATION
  Report Type: 
  Country: None (occurrence: None)
  Receive Date: 20091110
  Receipt Date: 20091013
  Transmission Date: 20100525
  Serious: No
  Sender: FDA-Public Use
  Company Number: 1000009438

PATIENT
  Age: 48 Year
  Sex: Female

DRUGS (3)
  1. SAVELLA [Suspect]
     Indication: NEUROPATHY PERIPHERAL
     Dosage: ORAL
     Route: 048
     Dates: start: 20090101, end: 20090901
  2. SAVELLA [Suspect]
     Indication: NEUROPATHY PERIPHERAL
     Dosage: ORAL
     Route: 048
     Dates: start: 20090101, end: 20090901
  3. INSULIN [Concomitant]

REACTIONS (2)
  - MUSCLE SPASMS [None]
  - PAIN IN EXTREMITY [None]
